FAERS Safety Report 6866130-X (Version None)
Quarter: 2010Q3

REPORT INFORMATION
  Report Type: 
  Country: None (occurrence: None)
  Receive Date: 20100722
  Receipt Date: 20100713
  Transmission Date: 20110219
  Serious: Yes (Hospitalization)
  Sender: FDA-Public Use
  Company Number: MX-ASTRAZENECA-2010SE31192

PATIENT
  Age: 37 Year
  Sex: Female
  Weight: 31.8 kg

DRUGS (1)
  1. IRESSA [Suspect]
     Indication: LUNG ADENOCARCINOMA
     Route: 048
     Dates: start: 20100401, end: 20100601

REACTIONS (1)
  - RESPIRATORY DISORDER [None]
